FAERS Safety Report 6099257-3 (Version None)
Quarter: 2009Q1

REPORT INFORMATION
  Report Type: 
  Country: None (occurrence: None)
  Receive Date: 20090303
  Receipt Date: 20090226
  Transmission Date: 20090719
  Serious: No
  Sender: FDA-Public Use
  Company Number: US-JNJFOC-20090300113

PATIENT
  Sex: Female
  Weight: 68.04 kg

DRUGS (4)
  1. DURAGESIC-100 [Suspect]
     Route: 062
  2. DURAGESIC-100 [Suspect]
     Indication: SCIATICA
     Route: 062
  3. KLONOPIN [Concomitant]
     Indication: NEUROPATHY PERIPHERAL
     Route: 048
  4. XANAX [Concomitant]
     Indication: NEUROPATHY PERIPHERAL
     Route: 048

REACTIONS (6)
  - ASTHENIA [None]
  - DRUG DOSE OMISSION [None]
  - EATING DISORDER [None]
  - NERVOUSNESS [None]
  - PRODUCT QUALITY ISSUE [None]
  - WEIGHT DECREASED [None]
